FAERS Safety Report 6048873-3 (Version None)
Quarter: 2009Q1

REPORT INFORMATION
  Report Type: 
  Country: None (occurrence: None)
  Receive Date: 20090123
  Receipt Date: 20090112
  Transmission Date: 20090719
  Serious: Yes (Other)
  Sender: FDA-Public Use
  Company Number: TW-ELI_LILLY_AND_COMPANY-TW200901001721

PATIENT
  Age: 70 Year
  Sex: Male

DRUGS (2)
  1. GEMZAR [Suspect]
     Indication: NON-SMALL CELL LUNG CANCER STAGE IIIB
     Dosage: 1000 MG/M2, 30 MINS INFUSION ON DAYS 1,8 AND 15 OF EACH CYCLE.
     Route: 042
  2. EPIRUBICIN [Concomitant]
     Dosage: 70 MG/M2, UNK ON DAY 15 OF EACH CYCLE
     Route: 042

REACTIONS (1)
  - CARDIOTOXICITY [None]
